FAERS Safety Report 5315662-4 (Version None)
Quarter: 2007Q2

REPORT INFORMATION
  Report Type: 
  Country: None (occurrence: None)
  Receive Date: 20070430
  Receipt Date: 20070430
  Transmission Date: 20071010
  Serious: Yes (Life-Threatening, Hospitalization)
  Sender: FDA-Public Use
  Company Number: None

PATIENT
  Sex: Male
  Weight: 101 kg

DRUGS (2)
  1. TRAMADOL HCL [Suspect]
     Dosage: 400 MG  DAILY  PO
     Route: 048
  2. ESCITALOPRAM OXALATE [Suspect]
     Dosage: 30 MG  DAILY  PO
     Route: 048

REACTIONS (2)
  - CONVULSION [None]
  - RESPIRATORY ARREST [None]
